FAERS Safety Report 18228686 (Version 1)
Quarter: 2020Q3

REPORT INFORMATION
  Report Type: Spontaneous
  Country: US (occurrence: US)
  Receive Date: 20200903
  Receipt Date: 20200903
  Transmission Date: 20201103
  Serious: Yes (Disabling)
  Sender: FDA-Public Use
  Company Number: None

PATIENT
  Age: 56 Year
  Sex: Female
  Weight: 54 kg

DRUGS (4)
  1. ACCUTANE [Suspect]
     Active Substance: ISOTRETINOIN
     Indication: ACNE CYSTIC
     Route: 048
     Dates: start: 19800101, end: 19800601
  2. LEVOTHYROXINE. [Concomitant]
     Active Substance: LEVOTHYROXINE
  3. TYLENOL [Concomitant]
     Active Substance: ACETAMINOPHEN
  4. SOTRET [Suspect]
     Active Substance: ISOTRETINOIN

REACTIONS (11)
  - Cramp-fasciculation syndrome [None]
  - Diplopia [None]
  - Night blindness [None]
  - Headache [None]
  - Tinnitus [None]
  - Contusion [None]
  - Myalgia [None]
  - Autoimmune thyroiditis [None]
  - Asthenia [None]
  - Muscle twitching [None]
  - Dysphonia [None]

NARRATIVE: CASE EVENT DATE: 19980102
